FAERS Safety Report 8883303 (Version 1)
Quarter: 2012Q4

REPORT INFORMATION
  Report Type: 
  Country: CA (occurrence: CA)
  Receive Date: 20121102
  Receipt Date: 20121102
  Transmission Date: 20130627
  Serious: Yes (Other)
  Sender: FDA-Public Use
  Company Number: CA-PFIZER INC-2012267929

PATIENT
  Age: 51 Year
  Sex: Male

DRUGS (9)
  1. CELEBREX [Suspect]
     Indication: SWELLING
     Dosage: UNK
     Dates: start: 1998
  2. CELEBREX [Suspect]
     Indication: PAIN
     Dosage: 200 mg, 2x/day
  3. LOSEC [Concomitant]
     Dosage: 20 mg, 1x/day
  4. ATENOLOL [Concomitant]
     Dosage: 50 UNK, 1x/day
  5. TORADOL [Concomitant]
     Dosage: 100 UNK, 3x/day
  6. RELAFEN [Concomitant]
     Dosage: 1000 UNK, 2x/day
  7. SYNTHROID [Concomitant]
     Dosage: 75 mg (1 caplet), UNK
  8. AVALIDE [Concomitant]
     Dosage: UNK (1 caplet)
  9. KADIAN ^KNOLL^ [Concomitant]
     Dosage: UNK (1 caplet)

REACTIONS (3)
  - Chest pain [Recovered/Resolved]
  - Tachycardia [Recovered/Resolved]
  - Central venous pressure increased [Recovered/Resolved]
